FAERS Safety Report 15982663 (Version 1)
Quarter: 2019Q1

REPORT INFORMATION
  Report Type: Spontaneous
  Country: FR (occurrence: FR)
  Receive Date: 20190219
  Receipt Date: 20190219
  Transmission Date: 20190418
  Serious: Yes (Life-Threatening, Other)
  Sender: FDA-Public Use
  Company Number: FR-PFIZER INC-2018418058

PATIENT
  Age: 27 Year
  Sex: Female
  Weight: 69 kg

DRUGS (2)
  1. CHAMPIX [Suspect]
     Active Substance: VARENICLINE TARTRATE
     Indication: SMOKING CESSATION THERAPY
     Dosage: UNK
  2. LUDEAL [Concomitant]
     Active Substance: ETHINYL ESTRADIOL\LEVONORGESTREL
     Indication: CONTRACEPTION
     Dosage: UNK

REACTIONS (10)
  - Disorientation [Recovered/Resolved]
  - Suicidal ideation [Recovered/Resolved]
  - Dizziness [Recovered/Resolved]
  - Depressed mood [Unknown]
  - Amnesia [Recovered/Resolved]
  - Psychotic disorder [Recovered/Resolved]
  - Insomnia [Recovered/Resolved]
  - Aggression [Recovered/Resolved]
  - Drug dependence [Recovered/Resolved]
  - Nausea [Recovered/Resolved]

NARRATIVE: CASE EVENT DATE: 20180214
